FAERS Safety Report 11058297 (Version 2)
Quarter: 2015Q2

REPORT INFORMATION
  Report Type: Spontaneous
  Country: IT (occurrence: None)
  Receive Date: 20150421
  Receipt Date: 20150429
  Transmission Date: 20150821
  Serious: Yes (Death, Hospitalization, Other)
  Sender: FDA-Public Use
  Company Number: 2015COV00083

PATIENT
  Age: 84 Year
  Sex: Male

DRUGS (4)
  1. ROCALTROL (CALCITROL) [Concomitant]
  2. KAYEXALATE [Suspect]
     Active Substance: SODIUM POLYSTYRENE SULFONATE
     Indication: HYPERKALAEMIA
     Dosage: 1 DOSAGE UNITS
     Route: 048
     Dates: start: 20140101, end: 20141010
  3. TRIATEC (RAMIPRIL) [Concomitant]
     Active Substance: RAMIPRIL
  4. PREFOLIC (CALCIUM FOLINATE) [Concomitant]

REACTIONS (14)
  - Hypokalaemia [None]
  - Normochromic normocytic anaemia [None]
  - Cardiac murmur [None]
  - Rhabdomyolysis [None]
  - Hypoproteinaemia [None]
  - Decreased appetite [None]
  - Paraparesis [None]
  - Dehydration [None]
  - Acute pulmonary oedema [None]
  - Mucosal discolouration [None]
  - Abdominal pain upper [None]
  - Drug monitoring procedure not performed [None]
  - Lung disorder [None]
  - Cough [None]

NARRATIVE: CASE EVENT DATE: 2013
